FAERS Safety Report 4633262-6 (Version None)
Quarter: 2005Q2

REPORT INFORMATION
  Report Type: 
  Country: None (occurrence: None)
  Receive Date: 20050408
  Receipt Date: 20050330
  Transmission Date: 20051028
  Serious: Yes (Hospitalization)
  Sender: FDA-Public Use
  Company Number: 2005CG00657

PATIENT
  Age: 69 Year
  Sex: Male

DRUGS (3)
  1. NEXIUM [Suspect]
     Indication: PROPHYLAXIS
     Dosage: 20 MG QD PO
     Route: 048
     Dates: start: 20041201, end: 20050301
  2. PROPRANOLOL HYDROCHLORIDE [Concomitant]
  3. VITAMIN B1 AND B6 [Concomitant]

REACTIONS (9)
  - CHOLESTASIS [None]
  - CONDITION AGGRAVATED [None]
  - HAEMATURIA [None]
  - HYPERURICAEMIA [None]
  - LIVER DISORDER [None]
  - PLATELET COUNT DECREASED [None]
  - PORTAL VEIN THROMBOSIS [None]
  - PROTHROMBIN TIME PROLONGED [None]
  - RENAL FAILURE ACUTE [None]
